FAERS Safety Report 15195378 (Version 1)
Quarter: 2018Q3

REPORT INFORMATION
  Report Type: Spontaneous
  Country: US (occurrence: US)
  Receive Date: 20180725
  Receipt Date: 20180725
  Transmission Date: 20181010
  Serious: Yes (Hospitalization)
  Sender: FDA-Public Use
  Company Number: US-PFIZER INC-2681274

PATIENT
  Age: 35 Month
  Sex: Female

DRUGS (4)
  1. CARBOPLATIN. [Suspect]
     Active Substance: CARBOPLATIN
     Indication: NEUROFIBROMATOSIS
  2. VINCRISTINE SULFATE. [Suspect]
     Active Substance: VINCRISTINE SULFATE
     Indication: OPTIC GLIOMA
     Dosage: 1.5 MG/M2, FREQ: 1 WEEK; INTERVAL: 1
     Route: 041
  3. CARBOPLATIN. [Suspect]
     Active Substance: CARBOPLATIN
     Indication: OPTIC GLIOMA
     Dosage: 175 MG/M2, FREQ: 1 WEEK; INTERVAL: 1
  4. VINCRISTINE SULFATE. [Suspect]
     Active Substance: VINCRISTINE SULFATE
     Indication: NEUROFIBROMATOSIS

REACTIONS (1)
  - Haemolytic anaemia [Recovered/Resolved]
